FAERS Safety Report 14524666 (Version 1)
Quarter: 2018Q1

REPORT INFORMATION
  Report Type: Spontaneous
  Country: US (occurrence: US)
  Receive Date: 20180210
  Receipt Date: 20180210
  Transmission Date: 20180509
  Serious: No
  Sender: FDA-Public Use
  Company Number: None

PATIENT
  Sex: Female

DRUGS (1)
  1. CIMZIA [Suspect]
     Active Substance: CERTOLIZUMAB PEGOL
     Indication: RHEUMATOID ARTHRITIS
     Dosage: 400MG Q4WKS SQ
     Route: 058
     Dates: start: 201510

REACTIONS (4)
  - Ear infection [None]
  - Vomiting [None]
  - Diarrhoea [None]
  - Therapy cessation [None]
